FAERS Safety Report 5918409-3 (Version None)
Quarter: 2008Q4

REPORT INFORMATION
  Report Type: 
  Country: None (occurrence: None)
  Receive Date: 20081010
  Receipt Date: 20080930
  Transmission Date: 20090506
  Serious: Yes (Hospitalization)
  Sender: FDA-Public Use
  Company Number: 093008-3

PATIENT
  Age: 48 Year
  Sex: Male

DRUGS (4)
  1. 50 IU/ML HYALURONIDASE THIAMUCASE EXEL FARMA [Suspect]
     Dosage: 50 IU HYALURONIDASE 055
     Route: 015
  2. LIDOCAINE [Concomitant]
  3. BUPIVACAINE [Concomitant]
  4. EPINEPHRINE [Concomitant]

REACTIONS (7)
  - DYSPHAGIA [None]
  - ERYTHEMA OF EYELID [None]
  - EYELID OEDEMA [None]
  - FACE OEDEMA [None]
  - HYPERSENSITIVITY [None]
  - PRURITUS [None]
  - THROAT IRRITATION [None]
